FAERS Safety Report 6236411-1 (Version None)
Quarter: 2009Q2

REPORT INFORMATION
  Report Type: 
  Country: None (occurrence: None)
  Receive Date: 20090619
  Receipt Date: 20090608
  Transmission Date: 20091009
  Serious: Yes (Other)
  Sender: FDA-Public Use
  Company Number: US-ELI_LILLY_AND_COMPANY-US200906002150

PATIENT
  Sex: Male

DRUGS (5)
  1. CYMBALTA [Suspect]
     Indication: ANXIETY
     Dosage: 30 MG, DAILY (1/D)
  2. PERCOCET [Concomitant]
  3. DILAUDID [Concomitant]
  4. FENTANYL [Concomitant]
     Route: 062
  5. ANTIHYPERTENSIVES [Concomitant]

REACTIONS (5)
  - EUPHORIC MOOD [None]
  - FEELING OF RELAXATION [None]
  - HYPERHIDROSIS [None]
  - ROTATOR CUFF REPAIR [None]
  - SURGERY [None]
